FAERS Safety Report 4297294-2 (Version None)
Quarter: 2004Q1

REPORT INFORMATION
  Report Type: 
  Country: None (occurrence: None)
  Receive Date: 20040218
  Receipt Date: 20040209
  Transmission Date: 20041129
  Serious: Yes (Death, Hospitalization)
  Sender: FDA-Public Use
  Company Number: 200411815GDDC

PATIENT
  Age: 40 Year
  Sex: Female

DRUGS (7)
  1. EUGLUCON [Suspect]
     Indication: DIABETES MELLITUS
     Dosage: DOSE: 2 TABLETS
     Route: 048
     Dates: end: 20031218
  2. GLUCOPHAGE [Suspect]
     Indication: DIABETES MELLITUS
     Route: 048
     Dates: end: 20031218
  3. LEPONEX [Suspect]
     Indication: SCHIZOPHRENIA
     Dosage: DOSE: 3 TABLETS
     Route: 048
     Dates: end: 20031219
  4. ZANTAC [Concomitant]
  5. AKINETON [Concomitant]
  6. THERALEN [Concomitant]
  7. NORMORIX [Concomitant]

REACTIONS (21)
  - ACIDOSIS [None]
  - ANXIETY [None]
  - BLOOD LACTIC ACID INCREASED [None]
  - BLOOD POTASSIUM INCREASED [None]
  - BLOOD PRESSURE DECREASED [None]
  - BLOOD PRESSURE INCREASED [None]
  - BODY TEMPERATURE INCREASED [None]
  - BRADYCARDIA [None]
  - CARDIAC ARREST [None]
  - DIALYSIS [None]
  - GASTROENTERITIS [None]
  - HEPATIC HAEMORRHAGE [None]
  - HYPERVENTILATION [None]
  - HYPOGLYCAEMIA [None]
  - OBESITY [None]
  - OVARIAN NEOPLASM [None]
  - PERICARDIAL DISEASE [None]
  - PETECHIAE [None]
  - RENAL FAILURE [None]
  - RESPIRATORY ARREST [None]
  - SHOCK [None]
